FAERS Safety Report 18426535 (Version 1)
Quarter: 2020Q4

REPORT INFORMATION
  Report Type: Spontaneous
  Country: US (occurrence: US)
  Receive Date: 20201026
  Receipt Date: 20201026
  Transmission Date: 20210114
  Serious: Yes (Other)
  Sender: FDA-Public Use
  Company Number: US-PFIZER INC-2020411701

PATIENT
  Age: 73 Year
  Sex: Female

DRUGS (1)
  1. PREMARIN [Suspect]
     Active Substance: ESTROGENS, CONJUGATED
     Indication: UTERINE DISORDER
     Dosage: UNK

REACTIONS (3)
  - Off label use [Unknown]
  - Non-Hodgkin^s lymphoma [Unknown]
  - Product use in unapproved indication [Unknown]
